FAERS Safety Report 21484600 (Version 1)
Quarter: 2022Q4

REPORT INFORMATION
  Report Type: Spontaneous
  Country: US (occurrence: US)
  Receive Date: 20221020
  Receipt Date: 20221020
  Transmission Date: 20230113
  Serious: No
  Sender: FDA-Public Use
  Company Number: US-CELLTRION INC.-2022US010262

PATIENT

DRUGS (2)
  1. INFLECTRA [Suspect]
     Active Substance: INFLIXIMAB-DYYB
     Indication: Product used for unknown indication
     Dosage: DOSE = 1100MG ON 6/22/21 WT = 118.2KG DIRECTIONS INFLECTRA 10MG/KG Q 42 DAYS
     Route: 065
     Dates: start: 20210622
  2. INFLECTRA [Suspect]
     Active Substance: INFLIXIMAB-DYYB
     Dosage: DOSE + 1200MG ON 8/3/21 WT 121.1 KG DIRECTIONS: INFLECTRA 10 MG/KG Q 42 DAYS
     Route: 065
     Dates: start: 20210803

REACTIONS (1)
  - Product dispensing error [Unknown]
